FAERS Safety Report 6187383-X (Version None)
Quarter: 2009Q2

REPORT INFORMATION
  Report Type: 
  Country: None (occurrence: None)
  Receive Date: 20090512
  Receipt Date: 20090505
  Transmission Date: 20091009
  Serious: Yes (Hospitalization)
  Sender: FDA-Public Use
  Company Number: B0572812A

PATIENT
  Sex: Female
  Weight: 84 kg

DRUGS (3)
  1. LAPATINIB [Suspect]
     Indication: BREAST CANCER
     Dosage: 1500MG PER DAY
     Route: 048
     Dates: start: 20090304
  2. TRASTUZUMAB [Suspect]
     Indication: BREAST CANCER
     Route: 042
     Dates: start: 20081023
  3. PACLITAXEL [Suspect]
     Indication: BREAST CANCER
     Route: 042
     Dates: start: 20081023

REACTIONS (6)
  - ERYSIPELAS [None]
  - ERYTHEMA [None]
  - LEUKOCYTOSIS [None]
  - NAUSEA [None]
  - PYREXIA [None]
  - SWELLING [None]
